FAERS Safety Report 6056372-8 (Version None)
Quarter: 2009Q1

REPORT INFORMATION
  Report Type: 
  Country: None (occurrence: None)
  Receive Date: 20090129
  Receipt Date: 20090119
  Transmission Date: 20090719
  Serious: Yes (Hospitalization)
  Sender: FDA-Public Use
  Company Number: TR-WATSON-2009-00320

PATIENT

DRUGS (1)
  1. SULFASALAZINE [Suspect]
     Indication: CROHN'S DISEASE
     Dosage: UNK

REACTIONS (4)
  - COMA [None]
  - ENCEPHALOPATHY ALLERGIC [None]
  - MONOPARESIS [None]
  - STUPOR [None]
